FAERS Safety Report 12690326 (Version 1)
Quarter: 2016Q3

REPORT INFORMATION
  Report Type: Spontaneous
  Country: US (occurrence: US)
  Receive Date: 20160826
  Receipt Date: 20160826
  Transmission Date: 20161109
  Serious: Yes (Other)
  Sender: FDA-Public Use
  Company Number: US-MALLINCKRODT-T201603917

PATIENT
  Age: 23 Year
  Sex: Male
  Weight: 72 kg

DRUGS (12)
  1. VFEND [Concomitant]
     Active Substance: VORICONAZOLE
  2. VALTREX [Concomitant]
     Active Substance: VALACYCLOVIR HYDROCHLORIDE
  3. ENTOCORT [Concomitant]
     Active Substance: BUDESONIDE
  4. PREDNISONE. [Concomitant]
     Active Substance: PREDNISONE
  5. UVADEX [Suspect]
     Active Substance: METHOXSALEN
     Indication: GRAFT VERSUS HOST DISEASE IN SKIN
     Dosage: 2.5ML
     Dates: start: 20160817, end: 20160817
  6. LEVAQUIN [Concomitant]
     Active Substance: LEVOFLOXACIN
  7. PENICILLIN [Concomitant]
     Active Substance: PENICILLIN
  8. TACROLIMUS. [Concomitant]
     Active Substance: TACROLIMUS
  9. PRILOSEC [Concomitant]
     Active Substance: OMEPRAZOLE MAGNESIUM
  10. BACTRIM [Concomitant]
     Active Substance: SULFAMETHOXAZOLE\TRIMETHOPRIM
  11. ZYRTEC [Concomitant]
     Active Substance: CETIRIZINE HYDROCHLORIDE
  12. HEPARIN [Concomitant]
     Active Substance: HEPARIN SODIUM
     Indication: ANTICOAGULANT THERAPY
     Dosage: 5000 UNITS IN 500ML SALINE
     Dates: start: 20160817, end: 20160817

REACTIONS (9)
  - Chest pain [Unknown]
  - Blood pressure increased [Unknown]
  - Off label use [Unknown]
  - Heart rate increased [Unknown]
  - Nausea [Unknown]
  - Vomiting [Unknown]
  - Pruritus [Unknown]
  - Eye swelling [Unknown]
  - Erythema [Unknown]

NARRATIVE: CASE EVENT DATE: 20160817
